FAERS Safety Report 7951403-X (Version None)
Quarter: 2011Q4

REPORT INFORMATION
  Report Type: 
  Country: None (occurrence: None)
  Receive Date: 20111129
  Receipt Date: 20111117
  Transmission Date: 20120403
  Serious: Yes (Hospitalization)
  Sender: FDA-Public Use
  Company Number: 2011SP044470

PATIENT
  Age: 64 Year
  Sex: Male
  Weight: 74 kg

DRUGS (11)
  1. PEG-INTERFERON (PEGINTERFERON ALFA-2B /01543001/) [Suspect]
     Indication: PRODUCT USED FOR UNKNOWN INDICATION
  2. RITONAVIR [Concomitant]
  3. RALTEGRAVIR [Concomitant]
  4. POLYETHYLENE GLYCOL [Concomitant]
  5. ANDROSKAT [Concomitant]
  6. ATAZANAVIR SULFATE [Suspect]
     Indication: HIV INFECTION
     Dosage: 300 MG;PO
     Route: 048
     Dates: start: 20060510, end: 20110824
  7. GLIMEPIRIDE [Concomitant]
  8. RIBAVIRIN [Suspect]
     Indication: PRODUCT USED FOR UNKNOWN INDICATION
  9. BLINDED SCH 503034 [Suspect]
     Indication: HEPATITIS C
     Dosage: 200 MG;TID;PO
     Route: 048
     Dates: start: 20100812, end: 20110616
  10. ABACAVIR SULFATE [Concomitant]
  11. REYATAZ [Concomitant]

REACTIONS (3)
  - CHOLELITHIASIS [None]
  - CHOLECYSTECTOMY [None]
  - PANCREATITIS [None]
